FAERS Safety Report 13623807 (Version 1)
Quarter: 2017Q2

REPORT INFORMATION
  Report Type: Spontaneous
  Country: US (occurrence: US)
  Receive Date: 20170607
  Receipt Date: 20170607
  Transmission Date: 20170830
  Serious: No
  Sender: FDA-Public Use
  Company Number: US-PURDUE-USA-2016-0134678

PATIENT
  Age: 42 Year
  Sex: Female

DRUGS (1)
  1. BUTRANS [Suspect]
     Active Substance: BUPRENORPHINE
     Indication: ANALGESIC THERAPY
     Dosage: 20 MCG/HR, WEEKLY
     Route: 062
     Dates: start: 2015

REACTIONS (2)
  - Product adhesion issue [Not Recovered/Not Resolved]
  - Pain [Not Recovered/Not Resolved]

NARRATIVE: CASE EVENT DATE: 20161029
